FAERS Safety Report 8683351 (Version 2)
Quarter: 2013Q4

REPORT INFORMATION
  Report Type: Spontaneous
  Country: US (occurrence: US)
  Receive Date: 20120726
  Receipt Date: 20131101
  Transmission Date: 20140711
  Serious: No
  Sender: FDA-Public Use
  Company Number: US-009507513-1207USA008182

PATIENT
  Age: 52 Year
  Sex: Male

DRUGS (3)
  1. PROPECIA [Suspect]
     Indication: ALOPECIA
     Dosage: 1 MG, QD
     Route: 048
     Dates: end: 20120718
  2. LIPITOR [Concomitant]
  3. METFORMIN [Concomitant]
     Dosage: UNK

REACTIONS (1)
  - Tenderness [Not Recovered/Not Resolved]
